FAERS Safety Report 17260550 (Version 1)
Quarter: 2020Q1

REPORT INFORMATION
  Report Type: Spontaneous
  Country: US (occurrence: US)
  Receive Date: 20200113
  Receipt Date: 20200113
  Transmission Date: 20200409
  Serious: Yes (Death, Other)
  Sender: FDA-Public Use
  Company Number: US-AMGEN-USASP2020002278

PATIENT
  Age: 40 Year
  Sex: Female

DRUGS (1)
  1. BLINATUMOMAB [Suspect]
     Active Substance: BLINATUMOMAB
     Indication: ACUTE LYMPHOCYTIC LEUKAEMIA
     Dosage: UNK
     Route: 065

REACTIONS (5)
  - Cytokine release syndrome [Unknown]
  - Chloroma [Unknown]
  - Death [Fatal]
  - Transformation to acute myeloid leukaemia [Unknown]
  - Acute biphenotypic leukaemia [Unknown]
